FAERS Safety Report 9282332 (Version 1)
Quarter: 2013Q2

REPORT INFORMATION
  Report Type: Spontaneous
  Country: US (occurrence: US)
  Receive Date: 20130510
  Receipt Date: 20130510
  Transmission Date: 20140414
  Serious: Yes (Other)
  Sender: FDA-Public Use
  Company Number: US-BAYER-2013-057873

PATIENT
  Sex: Female

DRUGS (1)
  1. MIRENA [Suspect]
     Indication: CONTRACEPTION
     Dosage: 20 MCG/24HR, CONT
     Route: 015
     Dates: start: 20071018, end: 20110513

REACTIONS (8)
  - Uterine perforation [None]
  - Device related infection [None]
  - Injury [None]
  - Pain [None]
  - Discomfort [None]
  - Emotional distress [None]
  - General physical health deterioration [None]
  - Device difficult to use [None]
